FAERS Safety Report 24422029 (Version 1)
Quarter: 2024Q4

REPORT INFORMATION
  Report Type: Spontaneous
  Country: US (occurrence: US)
  Receive Date: 20241010
  Receipt Date: 20241010
  Transmission Date: 20250115
  Serious: Yes (Death)
  Sender: STRIDES
  Company Number: US-STRIDES ARCOLAB LIMITED-2024SP013088

PATIENT
  Age: 44 Year
  Sex: Female

DRUGS (5)
  1. PREDNISOLONE [Suspect]
     Active Substance: PREDNISOLONE
     Indication: Central nervous system lesion
     Dosage: UNK (TAPER)
     Route: 048
  2. METHYLPREDNISOLONE [Suspect]
     Active Substance: METHYLPREDNISOLONE
     Indication: Central nervous system lesion
     Dosage: 1 GRAM, QD
     Route: 042
  3. HUMAN IMMUNOGLOBULIN G [Suspect]
     Active Substance: HUMAN IMMUNOGLOBULIN G
     Indication: Central nervous system lesion
     Dosage: UNK
     Route: 042
  4. IPILIMUMAB;NIVOLUMAB [Concomitant]
     Indication: Sarcoma metastatic
     Dosage: UNK
     Route: 065
  5. IPILIMUMAB;NIVOLUMAB [Concomitant]
     Indication: Brain sarcoma

REACTIONS (1)
  - Therapy non-responder [Fatal]
